FAERS Safety Report 13195809 (Version 1)
Quarter: 2017Q1

REPORT INFORMATION
  Report Type: Spontaneous
  Country: US (occurrence: US)
  Receive Date: 20170207
  Receipt Date: 20170207
  Transmission Date: 20170428
  Serious: Yes (Hospitalization)
  Sender: FDA-Public Use
  Company Number: None

PATIENT
  Age: 43 Year
  Sex: Female
  Weight: 108.4 kg

DRUGS (19)
  1. TRAZODONE [Concomitant]
     Active Substance: TRAZODONE HYDROCHLORIDE
  2. CLONAZEPAN [Concomitant]
     Active Substance: CLONAZEPAM
  3. HUMALOG [Concomitant]
     Active Substance: INSULIN LISPRO
  4. ZOLPIDEM [Concomitant]
     Active Substance: ZOLPIDEM\ZOLPIDEM TARTRATE
  5. TACROLIMUS. [Concomitant]
     Active Substance: TACROLIMUS
  6. MYCOPHENOLIC [Concomitant]
     Active Substance: MYCOPHENOLIC ACID
  7. PANTOPRAZOLE [Concomitant]
     Active Substance: PANTOPRAZOLE SODIUM
  8. FAMOTIDINE. [Concomitant]
     Active Substance: FAMOTIDINE
  9. METROPROLOL [Concomitant]
     Active Substance: METOPROLOL
  10. WARFARIN [Concomitant]
     Active Substance: WARFARIN
  11. GABAPENTIN. [Concomitant]
     Active Substance: GABAPENTIN
  12. DEXTROSE 10% [Suspect]
     Active Substance: DEXTROSE
     Indication: HYPOGLYCAEMIA
     Dates: start: 20170125, end: 20170202
  13. METROCARBAMOL [Concomitant]
  14. DEXTROSE 50% [Suspect]
     Active Substance: DEXTROSE
     Indication: HYPOGLYCAEMIA
  15. BELVIC [Concomitant]
  16. CITALOPRAM [Concomitant]
     Active Substance: CITALOPRAM HYDROBROMIDE
  17. VENTOLIN [Concomitant]
     Active Substance: ALBUTEROL SULFATE
  18. OXYCODONE [Concomitant]
     Active Substance: OXYCODONE
  19. LAXATIVES [Concomitant]
     Active Substance: UNSPECIFIED INGREDIENT

REACTIONS (3)
  - Swelling [None]
  - Pain in extremity [None]
  - Pain [None]

NARRATIVE: CASE EVENT DATE: 20170125
